FAERS Safety Report 10462111 (Version 3)
Quarter: 2014Q4

REPORT INFORMATION
  Report Type: Spontaneous
  Country: JP (occurrence: JP)
  Receive Date: 20140918
  Receipt Date: 20141006
  Transmission Date: 20150528
  Serious: Yes (Death)
  Sender: FDA-Public Use
  Company Number: JP-BRISTOL-MYERS SQUIBB COMPANY-21403126

PATIENT
  Age: 63 Year
  Sex: Female
  Weight: 70 kg

DRUGS (6)
  1. BAYASPIRIN [Suspect]
     Active Substance: ASPIRIN
     Indication: PROPHYLAXIS
     Route: 048
  2. FOSAMAX [Suspect]
     Active Substance: ALENDRONATE SODIUM
     Route: 048
  3. LIVALO [Suspect]
     Active Substance: PITAVASTATIN CALCIUM
     Route: 048
  4. IRTRA [Suspect]
     Active Substance: IRBESARTAN\TRICHLORMETHIAZIDE
     Dosage: TABLET
     Route: 048
  5. FORXIGA [Suspect]
     Active Substance: DAPAGLIFLOZIN
     Indication: TYPE 2 DIABETES MELLITUS
     Dosage: TABS
     Route: 048
     Dates: start: 20140725
  6. ADALAT CC [Suspect]
     Active Substance: NIFEDIPINE
     Route: 048

REACTIONS (3)
  - Dehydration [None]
  - Myocardial ischaemia [Fatal]
  - Pulmonary embolism [None]

NARRATIVE: CASE EVENT DATE: 20140913
